FAERS Safety Report 17094964 (Version 1)
Quarter: 2019Q4

REPORT INFORMATION
  Report Type: Spontaneous
  Country: IE (occurrence: IE)
  Receive Date: 20191130
  Receipt Date: 20191130
  Transmission Date: 20200122
  Serious: Yes (Life-Threatening)
  Sender: FDA-Public Use
  Company Number: IE-TEVA-2019-IE-1143427

PATIENT
  Age: 76 Year
  Sex: Female
  Weight: 65 kg

DRUGS (10)
  1. MIRTAZAPINE (G) [Suspect]
     Active Substance: MIRTAZAPINE
     Dosage: 15 MILLIGRAM
     Route: 048
  2. ESOMEPRAZOLE (G) [Concomitant]
  3. ISONIAZID (GENERIC) [Suspect]
     Active Substance: ISONIAZID
     Indication: LATENT TUBERCULOSIS
     Dosage: 300 MILLIGRAM
     Route: 048
     Dates: start: 20190830
  4. METFORMIN (GENERIC) [Concomitant]
     Active Substance: METFORMIN HYDROCHLORIDE
     Indication: DIABETES MELLITUS
  5. PREDNISOLONE (GENERIC) [Concomitant]
  6. ATENOLOL (GENERIC) [Concomitant]
  7. CALCICHEW-D3 FORTE [Concomitant]
     Active Substance: CALCIUM\CHOLECALCIFEROL
     Dosage: FOR ACTIVE INGREDIENT CALCIUM CARBONATE THE STRENGTH IS 500 MILLIGRAM .
  8. ROSUVASTATIN (G) [Suspect]
     Active Substance: ROSUVASTATIN
     Dosage: 20 MILLIGRAM
     Route: 048
  9. INVOKANA [Suspect]
     Active Substance: CANAGLIFLOZIN
     Indication: DIABETES MELLITUS
     Dosage: 300 MILLIGRAM
     Route: 048
  10. PYRIDOXINE (GENERIC) [Concomitant]

REACTIONS (3)
  - Pancreatitis [Unknown]
  - Diabetic ketoacidosis [Unknown]
  - Cerebral infarction [Unknown]

NARRATIVE: CASE EVENT DATE: 201910
